FAERS Safety Report 12867633 (Version 1)
Quarter: 2016Q4

REPORT INFORMATION
  Report Type: Spontaneous
  Country: ES (occurrence: ES)
  Receive Date: 20161020
  Receipt Date: 20161020
  Transmission Date: 20170207
  Serious: Yes (Other)
  Sender: FDA-Public Use
  Company Number: ES-GILEAD-2016-0234588

PATIENT
  Age: 45 Year
  Sex: Male

DRUGS (7)
  1. RIBAVIRIN. [Suspect]
     Active Substance: RIBAVIRIN
     Indication: CHRONIC HEPATITIS C
     Dosage: UNK
     Route: 065
  2. SPIRAXIN [Concomitant]
     Active Substance: RIFAXIMIN
     Dosage: 400 MG, UNK
  3. SOVALDI [Suspect]
     Active Substance: SOFOSBUVIR
     Indication: CHRONIC HEPATITIS C
     Dosage: UNK
     Route: 065
  4. DAKLINZA [Suspect]
     Active Substance: DACLATASVIR
     Indication: CHRONIC HEPATITIS C
     Dosage: UNK
     Route: 065
  5. PANTOPRAZOLE [Concomitant]
     Active Substance: PANTOPRAZOLE SODIUM
     Dosage: 20 MG, QD
  6. OPONAF [Concomitant]
     Dosage: 1 UNK, UNK
  7. DIANBEN [Concomitant]
     Active Substance: METFORMIN HYDROCHLORIDE
     Dosage: 850 MG, UNK

REACTIONS (3)
  - Treatment failure [Unknown]
  - Off label use [Recovered/Resolved]
  - Viral mutation identified [Unknown]
